FAERS Safety Report 5941460-4 (Version None)
Quarter: 2008Q4

REPORT INFORMATION
  Report Type: 
  Country: None (occurrence: None)
  Receive Date: 20081031
  Receipt Date: 20081022
  Transmission Date: 20090506
  Serious: Yes (Other)
  Sender: FDA-Public Use
  Company Number: 100#03#2008-05433

PATIENT
  Age: 49 Year
  Sex: Male

DRUGS (2)
  1. ALENDRONIC ACID (ALENDRONIC ACID) [Suspect]
     Indication: DRUG USE FOR UNKNOWN INDICATION
     Dosage: ORAL
     Route: 048
  2. INSULIN (INSULIN) [Concomitant]

REACTIONS (5)
  - DYSPHAGIA [None]
  - ORAL CANDIDIASIS [None]
  - THERAPY RESPONDER [None]
  - TONGUE ULCERATION [None]
  - WRONG TECHNIQUE IN DRUG USAGE PROCESS [None]
